FAERS Safety Report 7269928-1 (Version None)
Quarter: 2011Q1

REPORT INFORMATION
  Report Type: 
  Country: None (occurrence: None)
  Receive Date: 20110202
  Receipt Date: 20110125
  Transmission Date: 20110831
  Serious: Yes (Life-Threatening, Hospitalization)
  Sender: FDA-Public Use
  Company Number: GB-PFIZER INC-GB-WYE-G05671210

PATIENT
  Age: 70 Year
  Sex: Male

DRUGS (3)
  1. CYTARABINE [Suspect]
     Indication: ACUTE MYELOID LEUKAEMIA
     Dosage: 400 MG, CYCLIC, ON DAYS 1-10
     Route: 065
     Dates: start: 20100210, end: 20100219
  2. GEMTUZUMAB OZOGAMICIN [Suspect]
     Indication: ACUTE MYELOID LEUKAEMIA
     Dosage: 6 MG, CYCLIC, ON DAY 1
     Route: 065
     Dates: start: 20100210, end: 20100210
  3. DAUNORUBICIN [Suspect]
     Indication: ACUTE MYELOID LEUKAEMIA
     Dosage: 100 MG, CYCLIC, ON DAYS 1, 3 AND 5
     Route: 042
     Dates: start: 20100210, end: 20100214

REACTIONS (2)
  - CARDIAC ARREST [None]
  - SEPSIS [None]
